FAERS Safety Report 7819224-6 (Version None)
Quarter: 2011Q4

REPORT INFORMATION
  Report Type: 
  Country: None (occurrence: None)
  Receive Date: 20111018
  Receipt Date: 20101209
  Transmission Date: 20120403
  Serious: Yes (Other)
  Sender: FDA-Public Use
  Company Number: US-ASTRAZENECA-2010SE58362

PATIENT
  Age: 17 Year
  Sex: Female

DRUGS (4)
  1. MEROPENEM [Suspect]
     Route: 042
  2. PIPERACILLIN-TAZOBACTUM [Concomitant]
     Route: 042
  3. MEROPENEM [Suspect]
     Indication: DRUG TOXICITY PROPHYLAXIS
     Route: 042
  4. AZTREONAM [Concomitant]

REACTIONS (1)
  - RASH ERYTHEMATOUS [None]
